FAERS Safety Report 7764979-2 (Version None)
Quarter: 2011Q3

REPORT INFORMATION
  Report Type: 
  Country: None (occurrence: None)
  Receive Date: 20110921
  Receipt Date: 20110914
  Transmission Date: 20111222
  Serious: Yes (Hospitalization)
  Sender: FDA-Public Use
  Company Number: AR-ROCHE-787296

PATIENT
  Age: 41 Year
  Sex: Female
  Weight: 62 kg

DRUGS (2)
  1. BLINDED TOCILIZUMAB [Suspect]
     Indication: RHEUMATOID ARTHRITIS
     Dosage: DOSE : BLINDED ;  DATE OF MOST RECENT DOSE PRIOR TO AE ONSET: 05 SEPTEMBER 2011
     Route: 058
     Dates: start: 20110516
  2. BLINDED TOCILIZUMAB [Suspect]
     Dosage: MOST RECENT DOSE PRIOE TO SAE: 05 SEPTEMBER 2011 : DOSE: BLINDED.
     Route: 042
     Dates: start: 20110516

REACTIONS (5)
  - PHARYNGOTONSILLITIS [None]
  - ANAEMIA [None]
  - BRONCHITIS [None]
  - URINARY TRACT INFECTION [None]
  - PHARYNGITIS [None]
